FAERS Safety Report 12066748 (Version 2)
Quarter: 2016Q1

REPORT INFORMATION
  Report Type: Spontaneous
  Country: US (occurrence: US)
  Receive Date: 20160210
  Receipt Date: 20160322
  Transmission Date: 20160526
  Serious: No
  Sender: FDA-Public Use
  Company Number: US-JNJFOC-20151223502

PATIENT
  Age: 50 Year
  Sex: Female
  Weight: 65.77 kg

DRUGS (10)
  1. NEXIUM [Concomitant]
     Active Substance: ESOMEPRAZOLE MAGNESIUM
     Dosage: 30 MINUTES BEFORE BREAKFAST
     Route: 048
  2. NEURONTIN [Concomitant]
     Active Substance: GABAPENTIN
     Route: 048
  3. FLEXERIL [Concomitant]
     Active Substance: CYCLOBENZAPRINE HYDROCHLORIDE
     Dosage: AS NEEDED
     Route: 048
  4. TYELENOL [Concomitant]
     Dosage: EVERY 6 HOURS AS NEEDED
     Route: 048
  5. LINZESS [Concomitant]
     Active Substance: LINACLOTIDE
     Route: 048
  6. LAMICTAL [Suspect]
     Active Substance: LAMOTRIGINE
     Indication: PRODUCT USED FOR UNKNOWN INDICATION
     Route: 048
     Dates: start: 20150122
  7. MOTRIN [Concomitant]
     Active Substance: IBUPROFEN
     Indication: PAIN
     Route: 048
  8. RISPERIDONE. [Suspect]
     Active Substance: RISPERIDONE
     Indication: PRODUCT USED FOR UNKNOWN INDICATION
     Dosage: HALF TABLET PO IN A.M. AS NEEDED AND ONE TABLET PO AT H.S.
     Route: 048
     Dates: start: 20150122, end: 20150130
  9. ATIVAN [Concomitant]
     Active Substance: LORAZEPAM
     Route: 048
  10. GEODON [Concomitant]
     Active Substance: ZIPRASIDONE HYDROCHLORIDE\ZIPRASIDONE MESYLATE
     Dosage: 200 MG DAILY EVERY EVENING
     Route: 048

REACTIONS (7)
  - Hypersensitivity [Unknown]
  - Anxiety [Recovered/Resolved]
  - Hypopnoea [Recovered/Resolved]
  - Bedridden [Recovered/Resolved]
  - Adverse event [Unknown]
  - Fatigue [Unknown]
  - Headache [Recovered/Resolved]

NARRATIVE: CASE EVENT DATE: 20150122
